FAERS Safety Report 18624854 (Version 1)
Quarter: 2020Q4

REPORT INFORMATION
  Report Type: Spontaneous
  Country: PR (occurrence: PR)
  Receive Date: 20201216
  Receipt Date: 20201216
  Transmission Date: 20210114
  Serious: No
  Sender: FDA-Public Use
  Company Number: PR-BAYER-2020-270529

PATIENT
  Sex: Female
  Weight: 58.96 kg

DRUGS (3)
  1. HUMIRA [Suspect]
     Active Substance: ADALIMUMAB
     Indication: RHEUMATOID ARTHRITIS
     Dosage: UNK
     Route: 058
     Dates: start: 20180327
  2. CLEOCIN [CLINDAMYCIN HYDROCHLORIDE] [Suspect]
     Active Substance: CLINDAMYCIN HYDROCHLORIDE
     Indication: GINGIVAL ABSCESS
     Dosage: UNK
  3. CIPRO [Suspect]
     Active Substance: CIPROFLOXACIN HYDROCHLORIDE
     Dosage: UNK

REACTIONS (6)
  - Gingival abscess [Recovered/Resolved]
  - Pain in extremity [Recovered/Resolved]
  - Tendonitis [Recovered/Resolved]
  - Inflammation [Recovered/Resolved]
  - Tendon pain [Recovered/Resolved]
  - Inflammation [Recovered/Resolved]

NARRATIVE: CASE EVENT DATE: 2020
